FAERS Safety Report 9264333 (Version 1)
Quarter: 2013Q2

REPORT INFORMATION
  Report Type: Spontaneous
  Country: US (occurrence: US)
  Receive Date: 20130430
  Receipt Date: 20130430
  Transmission Date: 20140414
  Serious: Yes (Hospitalization, Other)
  Sender: FDA-Public Use
  Company Number: US-ABBOTT-13P-163-1083276-00

PATIENT
  Age: 67 Year
  Sex: Female

DRUGS (11)
  1. VALPROATE SODIUM [Suspect]
     Indication: DEPRESSION
  2. VENLAFAXINE [Suspect]
     Indication: DEPRESSION
  3. ZIPRASIDONE [Suspect]
     Indication: BIPOLAR I DISORDER
  4. LITHIUM [Suspect]
     Indication: DEPRESSION
     Dosage: DAILY
  5. QUETIAPINE [Suspect]
     Indication: PSYCHOMOTOR HYPERACTIVITY
  6. QUETIAPINE [Suspect]
     Indication: SPEECH DISORDER
  7. QUETIAPINE [Suspect]
     Indication: GRANDIOSITY
  8. PROPRANOLOL HYDROCHLORIDE [Suspect]
     Indication: PRODUCT USED FOR UNKNOWN INDICATION
     Dosage: DAILY
  9. SERTRALINE [Concomitant]
     Indication: PRODUCT USED FOR UNKNOWN INDICATION
  10. CLONAZEPAM [Concomitant]
     Indication: PRODUCT USED FOR UNKNOWN INDICATION
  11. CARBIDOPA/LEVODOPA [Concomitant]
     Indication: PRODUCT USED FOR UNKNOWN INDICATION

REACTIONS (12)
  - Pressure of speech [Unknown]
  - Grandiosity [Unknown]
  - Psychomotor hyperactivity [Unknown]
  - Akathisia [Recovered/Resolved]
  - Agitation [Unknown]
  - Anxiety [Unknown]
  - Suicidal ideation [Unknown]
  - Cognitive disorder [Unknown]
  - Motor dysfunction [Unknown]
  - Dysphoria [Unknown]
  - Sedation [Unknown]
  - Orthostatic hypotension [Unknown]
